FAERS Safety Report 9175045 (Version 1)
Quarter: 2013Q1

REPORT INFORMATION
  Report Type: Spontaneous
  Country: IT (occurrence: None)
  Receive Date: 20130315
  Receipt Date: 20130315
  Transmission Date: 20140127
  Serious: Yes (Hospitalization)
  Sender: FDA-Public Use
  Company Number: SYM-2013-01535

PATIENT
  Age: 75 Year
  Sex: Male

DRUGS (3)
  1. CONDIUREN [Suspect]
     Indication: HYPERTENSION
     Route: 048
     Dates: start: 20090101, end: 20130221
  2. LANSOX (LANSOPRAZOLE ) (UNKNOWN) (LANSOPRAZOLE) [Concomitant]
  3. COVERSYL (PERINDOPRIL) [Concomitant]

REACTIONS (2)
  - Medication error [None]
  - Hyponatraemia [None]
